FAERS Safety Report 24876350 (Version 1)
Quarter: 2025Q1

REPORT INFORMATION
  Report Type: Report from Study
  Country: JP (occurrence: JP)
  Receive Date: 20250123
  Receipt Date: 20250123
  Transmission Date: 20250408
  Serious: Yes (Hospitalization)
  Sender: JOHNSON AND JOHNSON
  Company Number: JP-JNJFOC-20221032829

PATIENT
  Age: 63 Year
  Sex: Male

DRUGS (4)
  1. ERLEADA [Suspect]
     Active Substance: APALUTAMIDE
     Indication: Hormone-dependent prostate cancer
     Route: 048
     Dates: start: 20220214
  2. ERLEADA [Suspect]
     Active Substance: APALUTAMIDE
     Route: 048
  3. ZYTIGA [Concomitant]
     Active Substance: ABIRATERONE ACETATE
     Indication: Product used for unknown indication
     Route: 048
  4. ZYTIGA [Concomitant]
     Active Substance: ABIRATERONE ACETATE
     Route: 048

REACTIONS (2)
  - Infection [Unknown]
  - Rash [Unknown]

NARRATIVE: CASE EVENT DATE: 20220101
